FAERS Safety Report 5962600-7 (Version None)
Quarter: 2008Q4

REPORT INFORMATION
  Report Type: 
  Country: None (occurrence: None)
  Receive Date: 20081121
  Receipt Date: 20081112
  Transmission Date: 20090506
  Serious: Yes (Other)
  Sender: FDA-Public Use
  Company Number: FR-PFIZER INC-2008096454

PATIENT
  Age: 58 Year
  Sex: Female

DRUGS (1)
  1. TAHOR [Suspect]

REACTIONS (6)
  - DYSPNOEA [None]
  - GAIT DISTURBANCE [None]
  - HEADACHE [None]
  - MALAISE [None]
  - VERTIGO [None]
  - VOMITING [None]
